FAERS Safety Report 8438141-4 (Version None)
Quarter: 2012Q2

REPORT INFORMATION
  Report Type: 
  Country: None (occurrence: None)
  Receive Date: 20120614
  Receipt Date: 20120606
  Transmission Date: 20120825
  Serious: Yes (Hospitalization)
  Sender: FDA-Public Use
  Company Number: US-ROCHE-1070735

PATIENT
  Age: 61 Year
  Sex: Female
  Weight: 83.3 kg

DRUGS (4)
  1. HERCEPTIN [Suspect]
     Indication: BREAST CANCER
     Route: 042
     Dates: start: 20110623, end: 20111013
  2. HERCEPTIN [Suspect]
     Route: 042
  3. CYCLOPHOSPHAMIDE [Suspect]
     Indication: BREAST CANCER
     Dosage: LAST DOSE PRIOR TO SAE 13/OCT/2011
     Route: 042
     Dates: start: 20110623
  4. DOCETAXEL [Suspect]
     Indication: BREAST CANCER
     Dosage: LAST DOSE PRIOR TO SAE 13/OCT/2011
     Route: 042
     Dates: start: 20110623

REACTIONS (5)
  - LOCALISED OEDEMA [None]
  - DYSPNOEA [None]
  - PLEURAL EFFUSION [None]
  - PULMONARY OEDEMA [None]
  - OEDEMA PERIPHERAL [None]
